FAERS Safety Report 9261327 (Version 1)
Quarter: 2013Q2

REPORT INFORMATION
  Report Type: Spontaneous
  Country: US (occurrence: US)
  Receive Date: 20130429
  Receipt Date: 20130429
  Transmission Date: 20140414
  Serious: Yes (Hospitalization)
  Sender: FDA-Public Use
  Company Number: US-B.I. PHARMACEUTICALS,INC./RIDGEFIELD-2013-BI-10939BP

PATIENT
  Age: 79 Year
  Sex: Female

DRUGS (3)
  1. PRADAXA [Suspect]
     Dosage: 300 MG
     Route: 048
     Dates: start: 201211, end: 2013
  2. PRADAXA [Suspect]
     Dosage: 150 MG
     Route: 048
     Dates: end: 2013
  3. ANTIHYPERTENSIVE MEDICATION [Concomitant]
     Indication: HYPERTENSION

REACTIONS (2)
  - Cerebrovascular accident [Recovered/Resolved]
  - Drug dose omission [Recovered/Resolved]
